FAERS Safety Report 9364827 (Version 1)
Quarter: 2013Q2

REPORT INFORMATION
  Report Type: Spontaneous
  Country: US (occurrence: US)
  Receive Date: 20130624
  Receipt Date: 20130624
  Transmission Date: 20140414
  Serious: No
  Sender: FDA-Public Use
  Company Number: US-US-EMD SERONO, INC.-7007490

PATIENT
  Age: 41 Year
  Sex: Female

DRUGS (2)
  1. GONAL-F [Suspect]
     Indication: IN VITRO FERTILISATION
     Dates: end: 2010
  2. MENOPUR [Suspect]
     Indication: IN VITRO FERTILISATION
     Dates: end: 2010

REACTIONS (1)
  - Blood follicle stimulating hormone abnormal [Not Recovered/Not Resolved]
